FAERS Safety Report 18129452 (Version 2)
Quarter: 2022Q1

REPORT INFORMATION
  Report Type: Spontaneous
  Country: US (occurrence: US)
  Receive Date: 20200810
  Receipt Date: 20220301
  Transmission Date: 20220423
  Serious: Yes (Other)
  Sender: FDA-Public Use
  Company Number: US-GLAXOSMITHKLINE-US2020GSK155425

PATIENT
  Age: 48 Year
  Sex: Female

DRUGS (5)
  1. ZANTAC [Suspect]
     Active Substance: RANITIDINE HYDROCHLORIDE
     Indication: Gastrooesophageal reflux disease
     Dosage: UNK
     Route: 048
     Dates: end: 2019
  2. ZANTAC [Suspect]
     Active Substance: RANITIDINE HYDROCHLORIDE
     Dosage: UNK, BID
     Route: 065
  3. RANITIDINE HYDROCHLORIDE [Suspect]
     Active Substance: RANITIDINE HYDROCHLORIDE
     Indication: Dyspepsia
     Dosage: 150 MG
     Route: 065
  4. ZANTAC [Suspect]
     Active Substance: RANITIDINE HYDROCHLORIDE
     Indication: Gastrooesophageal reflux disease
     Dosage: 75 MG, QD
     Route: 065
     Dates: start: 2004, end: 2019
  5. ZANTAC [Suspect]
     Active Substance: RANITIDINE HYDROCHLORIDE
     Indication: Dyspepsia
     Dosage: 150 MG, QD
     Route: 065
     Dates: start: 2004, end: 2019

REACTIONS (11)
  - Breast cancer [Unknown]
  - Invasive ductal breast carcinoma [Unknown]
  - Breast cancer metastatic [Unknown]
  - Metastases to lymph nodes [Unknown]
  - Breast cancer female [Unknown]
  - Anisomastia [Unknown]
  - Breast mass [Unknown]
  - Lymphadenopathy [Unknown]
  - Benign lymph node neoplasm [Unknown]
  - Breast calcifications [Unknown]
  - Breast pain [Unknown]

NARRATIVE: CASE EVENT DATE: 20190701
